FAERS Safety Report 6166559-1 (Version None)
Quarter: 2009Q2

REPORT INFORMATION
  Report Type: 
  Country: None (occurrence: None)
  Receive Date: 20090422
  Receipt Date: 20090409
  Transmission Date: 20091009
  Serious: Yes (Other)
  Sender: FDA-Public Use
  Company Number: 09-000579

PATIENT
  Age: 19 Year
  Sex: Female

DRUGS (1)
  1. LOESTRIN 24 FE [Suspect]
     Indication: CONTRACEPTION
     Dosage: 20/1000 UG, QD, ORAL
     Route: 048
     Dates: start: 20090402, end: 20090401

REACTIONS (4)
  - DRUG DOSE OMISSION [None]
  - HEADACHE [None]
  - NECK PAIN [None]
  - VOMITING [None]
